FAERS Safety Report 10553983 (Version 1)
Quarter: 2014Q4

REPORT INFORMATION
  Report Type: Spontaneous
  Country: US (occurrence: None)
  Receive Date: 20141023
  Receipt Date: 20141023
  Transmission Date: 20150529
  Serious: No
  Sender: FDA-Public Use
  Company Number: AP356-00985-SPO-US

PATIENT
  Age: 63 Year
  Sex: Male
  Weight: 108.9 kg

DRUGS (3)
  1. BELVIQ [Suspect]
     Active Substance: LORCASERIN HYDROCHLORIDE
     Indication: WEIGHT DECREASED
     Route: 048
     Dates: start: 20140430
  2. LIPITOR [Concomitant]
     Active Substance: ATORVASTATIN CALCIUM
  3. TOPROL (METOPROLOL SUCCINATE) [Concomitant]

REACTIONS (2)
  - Weight increased [None]
  - Drug ineffective [None]

NARRATIVE: CASE EVENT DATE: 2014
